FAERS Safety Report 12603471 (Version 1)
Quarter: 2016Q3

REPORT INFORMATION
  Report Type: Spontaneous
  Country: FR (occurrence: FR)
  Receive Date: 20160728
  Receipt Date: 20160728
  Transmission Date: 20161109
  Serious: Yes (Other)
  Sender: FDA-Public Use
  Company Number: FR-PFIZER INC-2016355785

PATIENT
  Age: 41 Year
  Sex: Male

DRUGS (3)
  1. BI-PRETERAX [Suspect]
     Active Substance: INDAPAMIDE\PERINDOPRIL
     Dosage: 10 MG/2.5 MG, 1X/DAY
     Route: 048
     Dates: start: 20160628, end: 20160628
  2. ISOPTINE [Suspect]
     Active Substance: VERAPAMIL HYDROCHLORIDE
     Dosage: 480 MG, 1X/DAY
     Route: 048
     Dates: start: 20160628, end: 20160628
  3. TAHOR [Suspect]
     Active Substance: ATORVASTATIN CALCIUM
     Dosage: 20 MG, 1X/DAY
     Route: 048
     Dates: start: 20160628, end: 20160628

REACTIONS (3)
  - Medication error [Recovered/Resolved]
  - Hypotension [Recovered/Resolved]
  - Asthenia [Recovered/Resolved]

NARRATIVE: CASE EVENT DATE: 20160628
